FAERS Safety Report 13269999 (Version 2)
Quarter: 2017Q2

REPORT INFORMATION
  Report Type: Spontaneous
  Country: US (occurrence: US)
  Receive Date: 20170224
  Receipt Date: 20170403
  Transmission Date: 20170830
  Serious: Yes (Hospitalization, Other)
  Sender: FDA-Public Use
  Company Number: US-SUNOVION-2017SUN000767

PATIENT
  Age: 23 Year
  Sex: Male
  Weight: 78 kg

DRUGS (4)
  1. LATUDA [Suspect]
     Active Substance: LURASIDONE HYDROCHLORIDE
     Dosage: 40 MG, UNK
     Route: 048
  2. LATUDA [Suspect]
     Active Substance: LURASIDONE HYDROCHLORIDE
     Dosage: 60 MG, UNK
     Route: 048
     Dates: start: 20160202, end: 20160206
  3. LATUDA [Suspect]
     Active Substance: LURASIDONE HYDROCHLORIDE
     Dosage: 20 MG, UNK
     Route: 048
     Dates: start: 20160201
  4. LATUDA [Suspect]
     Active Substance: LURASIDONE HYDROCHLORIDE
     Indication: BIPOLAR DISORDER
     Dosage: UNK
     Route: 048

REACTIONS (18)
  - Suicide threat [Recovered/Resolved]
  - Suicidal ideation [Recovered/Resolved]
  - Suicidal behaviour [Recovered/Resolved]
  - Energy increased [Recovered/Resolved]
  - Change in sustained attention [Recovered/Resolved]
  - Mania [Recovered/Resolved]
  - Nightmare [Unknown]
  - Aggression [Recovered/Resolved]
  - Depression [Recovering/Resolving]
  - Agitation [Recovered/Resolved]
  - Delusion [Recovered/Resolved]
  - Poor quality sleep [Recovering/Resolving]
  - Tachyphrenia [Recovered/Resolved]
  - Feeling guilty [Recovering/Resolving]
  - Delusion of replacement [Recovered/Resolved]
  - Irritability [Recovered/Resolved]
  - Logorrhoea [Recovered/Resolved]
  - Feelings of worthlessness [Recovering/Resolving]

NARRATIVE: CASE EVENT DATE: 20160102
